FAERS Safety Report 7208760-1 (Version None)
Quarter: 2011Q1

REPORT INFORMATION
  Report Type: 
  Country: None (occurrence: None)
  Receive Date: 20110104
  Receipt Date: 20101230
  Transmission Date: 20110831
  Serious: Yes (Hospitalization, Other)
  Sender: FDA-Public Use
  Company Number: US-PFIZER INC-2009178529

PATIENT
  Sex: Male
  Weight: 72 kg

DRUGS (4)
  1. LORTAB [Concomitant]
     Dosage: UNK
  2. NEXIUM [Concomitant]
     Indication: GASTRIC DISORDER
     Dosage: DAILY
  3. SUTENT [Suspect]
     Indication: METASTATIC RENAL CELL CARCINOMA
     Dosage: 50 MG, 1X/DAY, 4 WEEKS ON, 2 WEEKS OFF
     Route: 048
     Dates: start: 20080201
  4. CELEBREX [Concomitant]
     Dosage: UNK

REACTIONS (7)
  - BLISTER [None]
  - ABDOMINAL PAIN UPPER [None]
  - BLOOD PRESSURE INCREASED [None]
  - JOINT SWELLING [None]
  - PALMAR-PLANTAR ERYTHRODYSAESTHESIA SYNDROME [None]
  - INFECTION [None]
  - OESOPHAGEAL PAIN [None]
